FAERS Safety Report 18907761 (Version 1)
Quarter: 2021Q1

REPORT INFORMATION
  Report Type: Other
  Country: ES (occurrence: ES)
  Receive Date: 20210218
  Receipt Date: 20210218
  Transmission Date: 20210420
  Serious: Yes (Death, Other)
  Sender: FDA-Public Use
  Company Number: ES-ROCHE-2767680

PATIENT

DRUGS (14)
  1. FLUDARABINE [Suspect]
     Active Substance: FLUDARABINE PHOSPHATE
     Indication: PROPHYLAXIS AGAINST GRAFT VERSUS HOST DISEASE
     Dosage: ? 6 TO ? 3 (BUFLU?MAC)
     Route: 065
  2. SIROLIMUS. [Suspect]
     Active Substance: SIROLIMUS
     Indication: PROPHYLAXIS AGAINST GRAFT VERSUS HOST DISEASE
     Dosage: FROM DAY + 5.
     Route: 065
  3. THIOTEPA. [Suspect]
     Active Substance: THIOTEPA
     Dosage: DAYS ? 7 TO ? 6 (TBF?RIC)
     Route: 065
  4. BUSULFAN. [Suspect]
     Active Substance: BUSULFAN
     Dosage: DAYS ? 4 TO ? 3 (BUFLU?RIC)
     Route: 042
  5. MYCOPHENOLATE MOFETIL. [Suspect]
     Active Substance: MYCOPHENOLATE MOFETIL
     Indication: PROPHYLAXIS AGAINST GRAFT VERSUS HOST DISEASE
     Route: 065
  6. TACROLIMUS. [Suspect]
     Active Substance: TACROLIMUS
     Indication: PROPHYLAXIS AGAINST GRAFT VERSUS HOST DISEASE
     Route: 065
  7. BUSULFAN. [Suspect]
     Active Substance: BUSULFAN
     Indication: PROPHYLAXIS AGAINST GRAFT VERSUS HOST DISEASE
     Dosage: DAYS ? 6 TO? 3 (BUFLU?MAC)
     Route: 042
  8. THIOTEPA. [Suspect]
     Active Substance: THIOTEPA
     Indication: PROPHYLAXIS AGAINST GRAFT VERSUS HOST DISEASE
     Dosage: DAYS ? 7 TO ? 6 (TBF?MAC)
     Route: 065
  9. CYCLOPHOSPHAMIDE. [Suspect]
     Active Substance: CYCLOPHOSPHAMIDE
     Indication: PROPHYLAXIS AGAINST GRAFT VERSUS HOST DISEASE
     Dosage: ON DAYS + 3 AND + 4
     Route: 065
  10. CYCLOSPORINE. [Suspect]
     Active Substance: CYCLOSPORINE
     Indication: PROPHYLAXIS AGAINST GRAFT VERSUS HOST DISEASE
     Dosage: FROM DAY + 5
     Route: 065
  11. FLUDARABINE [Suspect]
     Active Substance: FLUDARABINE PHOSPHATE
     Dosage: DAYS ? 3 AND ? 2 (TBF?RIC)
     Route: 065
  12. BUSULFAN. [Suspect]
     Active Substance: BUSULFAN
     Dosage: DAY ? 3 (TBF?RIC)
     Route: 042
  13. FLUDARABINE [Suspect]
     Active Substance: FLUDARABINE PHOSPHATE
     Dosage: DAYS ? 5 TO ? 3 (TBF?MAC).
     Route: 065
  14. FLUDARABINE [Suspect]
     Active Substance: FLUDARABINE PHOSPHATE
     Dosage: DAYS ? 6 TO ? 2 (BUFLU?RIC)
     Route: 065

REACTIONS (11)
  - Venoocclusive liver disease [Fatal]
  - Leukoencephalopathy [Fatal]
  - Cystitis haemorrhagic [Unknown]
  - Fungal infection [Fatal]
  - Hepatotoxicity [Unknown]
  - Mucosal inflammation [Unknown]
  - Infection [Fatal]
  - Bacterial infection [Fatal]
  - Ischaemic cardiomyopathy [Fatal]
  - Cytomegalovirus infection reactivation [Unknown]
  - Thrombotic microangiopathy [Fatal]
